FAERS Safety Report 17607990 (Version 1)
Quarter: 2020Q1

REPORT INFORMATION
  Report Type: Spontaneous
  Country: US (occurrence: US)
  Receive Date: 20200331
  Receipt Date: 20200331
  Transmission Date: 20200409
  Serious: Yes (Hospitalization)
  Sender: FDA-Public Use
  Company Number: US-TEVA-2020-US-1216952

PATIENT
  Sex: Female
  Weight: 74.91 kg

DRUGS (4)
  1. REVATIO [Concomitant]
     Active Substance: SILDENAFIL CITRATE
  2. TRACLEER [Concomitant]
     Active Substance: BOSENTAN
  3. XARELTO [Concomitant]
     Active Substance: RIVAROXABAN
  4. EPOPROSTENOL. [Suspect]
     Active Substance: EPOPROSTENOL
     Dosage: STRENGTH OF DOSAGE FORM: EPOPROSTENOL 1.5 MG/VIAL     ?DOSE AND ROUTE: EPOPROSTENOL DOSE 30 NG PER K
     Route: 065
     Dates: start: 20150808

REACTIONS (2)
  - Influenza [Unknown]
  - Pneumonia [Unknown]
